FAERS Safety Report 7818250-0 (Version None)
Quarter: 2011Q4

REPORT INFORMATION
  Report Type: 
  Country: None (occurrence: None)
  Receive Date: 20111017
  Receipt Date: 20111010
  Transmission Date: 20120403
  Serious: Yes (Other)
  Sender: FDA-Public Use
  Company Number: GB-TEVA-304283ISR

PATIENT
  Age: 51 Year
  Sex: Female

DRUGS (8)
  1. FUROSEMIDE [Suspect]
  2. ORLISTAT [Suspect]
  3. ATORVASTATIN [Concomitant]
  4. GLICLAZIDE [Concomitant]
  5. METFORMIN HYDROCHLORIDE [Concomitant]
  6. ENALAPRIL MALEATE [Suspect]
  7. WARFARIN SODIUM [Concomitant]
  8. CARVEDILOL [Concomitant]

REACTIONS (1)
  - RENAL FAILURE ACUTE [None]
